FAERS Safety Report 17517160 (Version 1)
Quarter: 2020Q1

REPORT INFORMATION
  Report Type: Spontaneous
  Country: DE (occurrence: DE)
  Receive Date: 20200309
  Receipt Date: 20200309
  Transmission Date: 20200409
  Serious: Yes (Death, Other)
  Sender: FDA-Public Use
  Company Number: DE-MYLANLABS-2020M1023594

PATIENT
  Sex: Female

DRUGS (6)
  1. BEVACIZUMAB. [Concomitant]
     Active Substance: BEVACIZUMAB
     Indication: BREAST CANCER
     Dosage: 10 MG/KG, UNKNOWN
     Route: 042
     Dates: start: 201710, end: 201802
  2. ANASTROZOLE. [Suspect]
     Active Substance: ANASTROZOLE
     Indication: BREAST CANCER
     Dosage: UNK
     Route: 048
     Dates: start: 201811, end: 201911
  3. PACLITAXEL. [Suspect]
     Active Substance: PACLITAXEL
     Indication: BREAST CANCER
     Dosage: 80 OT, UNKNOWN
     Route: 042
     Dates: start: 201710, end: 201802
  4. ANASTROZOLE. [Suspect]
     Active Substance: ANASTROZOLE
     Dosage: UNK
     Route: 048
     Dates: start: 201802, end: 201810
  5. BEVACIZUMAB. [Concomitant]
     Active Substance: BEVACIZUMAB
     Dosage: UNK
     Route: 065
     Dates: start: 201802, end: 201810
  6. PALBOCICLIB [Concomitant]
     Active Substance: PALBOCICLIB
     Indication: BREAST CANCER
     Dosage: 125 MG, UNKNOWN
     Route: 048
     Dates: start: 201811, end: 201911

REACTIONS (16)
  - Lymphocyte count decreased [Unknown]
  - Alanine aminotransferase increased [Unknown]
  - Fibrin D dimer increased [Unknown]
  - Breast cancer [Unknown]
  - Neutrophil count increased [Unknown]
  - Red blood cell count decreased [Unknown]
  - Blood alkaline phosphatase increased [Unknown]
  - Death [Fatal]
  - Hypothyroidism [Unknown]
  - Malignant neoplasm progression [Unknown]
  - Metastases to liver [Unknown]
  - Aspartate aminotransferase increased [Unknown]
  - Metastases to lung [Unknown]
  - Metastases to bone [Unknown]
  - Hyponatraemia [Unknown]
  - Gamma-glutamyltransferase increased [Unknown]

NARRATIVE: CASE EVENT DATE: 201810
